FAERS Safety Report 9157214 (Version 2)
Quarter: 2013Q1

REPORT INFORMATION
  Report Type: Spontaneous
  Country: IN (occurrence: None)
  Receive Date: 20130212
  Receipt Date: 20130304
  Transmission Date: 20140127
  Serious: Yes (Other)
  Sender: FDA-Public Use
  Company Number: AUR-APL-2013-01255

PATIENT
  Age: 45 Year
  Sex: Female

DRUGS (5)
  1. FLUOXETINE [Suspect]
  2. CLOMIPRAMINE (CLOMIPRAMINE) [Concomitant]
  3. ALPRAZOLAM (ALPRAZOLAM) [Concomitant]
  4. QUETIAPINE (QUETIAPINE) [Concomitant]
  5. THYRONORM (DEXTROTHYROXINE SODIUM) [Concomitant]

REACTIONS (3)
  - Neutropenia [None]
  - Respiratory tract infection [None]
  - White blood cell count decreased [None]
